FAERS Safety Report 19066637 (Version 1)
Quarter: 2021Q1

REPORT INFORMATION
  Report Type: Spontaneous
  Country: CZ (occurrence: CZ)
  Receive Date: 20210328
  Receipt Date: 20210328
  Transmission Date: 20210420
  Serious: Yes (Other)
  Sender: FDA-Public Use
  Company Number: CZ-JNJFOC-20210351325

PATIENT
  Age: 9 Year
  Sex: Male

DRUGS (1)
  1. CONCERTA [Suspect]
     Active Substance: METHYLPHENIDATE HYDROCHLORIDE
     Indication: ATTENTION DEFICIT HYPERACTIVITY DISORDER
     Route: 048
     Dates: start: 202006, end: 202102

REACTIONS (3)
  - Penile swelling [Recovering/Resolving]
  - Ear congestion [Recovering/Resolving]
  - Lip swelling [Recovering/Resolving]

NARRATIVE: CASE EVENT DATE: 202012
